FAERS Safety Report 4693802-8 (Version None)
Quarter: 2005Q2

REPORT INFORMATION
  Report Type: 
  Country: None (occurrence: None)
  Receive Date: 20050616
  Receipt Date: 20050531
  Transmission Date: 20051028
  Serious: Yes (Death, Hospitalization)
  Sender: FDA-Public Use
  Company Number: 2005000586

PATIENT
  Age: 79 Year
  Sex: Male

DRUGS (2)
  1. ERLOTINIB HCL [Suspect]
     Indication: NON-SMALL CELL LUNG CANCER
     Dosage: 150 MG (QD), ORAL
     Route: 048
     Dates: start: 20050225
  2. DARBEPOETIN ALFA                   (DARBEPOETIN ALFA) [Concomitant]

REACTIONS (5)
  - GASTROINTESTINAL ULCER HAEMORRHAGE [None]
  - GASTROINTESTINAL ULCER PERFORATION [None]
  - HAEMOPTYSIS [None]
  - NEOPLASM PROGRESSION [None]
  - POST PROCEDURAL COMPLICATION [None]
